FAERS Safety Report 14423094 (Version 2)
Quarter: 2018Q1

REPORT INFORMATION
  Report Type: Spontaneous
  Country: US (occurrence: US)
  Receive Date: 20180123
  Receipt Date: 20180318
  Transmission Date: 20180509
  Serious: No
  Sender: FDA-Public Use
  Company Number: US-JNJFOC-20171224059

PATIENT
  Age: 15 Year
  Sex: Female
  Weight: 48.08 kg

DRUGS (1)
  1. REMICADE [Suspect]
     Active Substance: INFLIXIMAB
     Indication: CROHN^S DISEASE
     Route: 042
     Dates: start: 2014

REACTIONS (4)
  - Red blood cell sedimentation rate increased [Unknown]
  - Inflammatory marker increased [Unknown]
  - Anaemia [Unknown]
  - Product label issue [Unknown]

NARRATIVE: CASE EVENT DATE: 201711
